FAERS Safety Report 6258961-4 (Version None)
Quarter: 2009Q3

REPORT INFORMATION
  Report Type: 
  Country: None (occurrence: None)
  Receive Date: 20090702
  Receipt Date: 20090619
  Transmission Date: 20100115
  Serious: Yes (Hospitalization)
  Sender: FDA-Public Use
  Company Number: 236852K09USA

PATIENT
  Age: 64 Year
  Sex: Female
  Weight: 72 kg

DRUGS (3)
  1. REBIF [Suspect]
     Indication: MULTIPLE SCLEROSIS
     Dosage: 44 MCG, 3 IN 1 WEEKS, SUBCUTANEOUS
     Route: 058
     Dates: start: 20071202
  2. EXFORGE [Suspect]
     Indication: HYPERTENSION
  3. LYRICA [Concomitant]

REACTIONS (9)
  - BALANCE DISORDER [None]
  - BLOOD DISORDER [None]
  - CHEST PAIN [None]
  - DIZZINESS [None]
  - DUODENOGASTRIC REFLUX [None]
  - DYSPNOEA [None]
  - HIATUS HERNIA [None]
  - HYPOTENSION [None]
  - MEMORY IMPAIRMENT [None]
